FAERS Safety Report 7465779-3 (Version None)
Quarter: 2011Q2

REPORT INFORMATION
  Report Type: 
  Country: None (occurrence: None)
  Receive Date: 20110509
  Receipt Date: 20101104
  Transmission Date: 20111010
  Serious: No
  Sender: FDA-Public Use
  Company Number: US-SANOFI-AVENTIS-2010SA068198

PATIENT
  Sex: Male

DRUGS (2)
  1. LANTUS [Suspect]
     Dates: start: 20101102
  2. APIDRA [Suspect]
     Dosage: DOSE:12 UNIT(S)
     Route: 058
     Dates: start: 20101102

REACTIONS (3)
  - DYSPEPSIA [None]
  - ABDOMINAL DISCOMFORT [None]
  - ABDOMINAL PAIN UPPER [None]
